FAERS Safety Report 23846016 (Version 2)
Quarter: 2024Q3

REPORT INFORMATION
  Report Type: Spontaneous
  Country: GB (occurrence: GB)
  Receive Date: 20240512
  Receipt Date: 20240708
  Transmission Date: 20241017
  Serious: Yes (Other)
  Sender: AMGEN
  Company Number: GB-PFIZER INC-PV202400059321

PATIENT
  Age: 64 Year
  Sex: Female

DRUGS (2)
  1. ENBREL [Suspect]
     Active Substance: BENZYL ALCOHOL\ETANERCEPT
     Indication: Rheumatoid arthritis
     Dosage: 25 MILLIGRAM, 2 TIMES/WK (25 MG, 2X/WEEK)
     Route: 058
  2. ENBREL [Suspect]
     Active Substance: BENZYL ALCOHOL\ETANERCEPT
     Dosage: 25 MILLIGRAM, 2 TIMES/WK (25 MG, 2X/WEEK)
     Route: 058

REACTIONS (4)
  - Sinus disorder [Unknown]
  - Oropharyngeal discomfort [Unknown]
  - Influenza [Unknown]
  - Nasopharyngitis [Unknown]
